FAERS Safety Report 9191615 (Version 6)
Quarter: 2013Q4

REPORT INFORMATION
  Report Type: Report from Study
  Country: US (occurrence: US)
  Receive Date: 20130326
  Receipt Date: 20131111
  Transmission Date: 20140711
  Serious: Yes (Hospitalization, Other)
  Sender: FDA-Public Use
  Company Number: US-ACTELION-A-US2011-58153

PATIENT
  Age: 54 Year
  Sex: Female

DRUGS (5)
  1. TRACLEER [Suspect]
     Indication: PULMONARY ARTERIAL HYPERTENSION
     Dosage: UNK
     Route: 048
  2. TRACLEER [Suspect]
     Dosage: UNK
     Route: 048
  3. TRACLEER [Suspect]
     Dosage: UNK
     Route: 048
  4. PLAVIX [Concomitant]
  5. OXYGEN [Concomitant]

REACTIONS (24)
  - Renal failure [Unknown]
  - Renal disorder [Unknown]
  - Dehydration [Unknown]
  - Fall [Unknown]
  - Head injury [Unknown]
  - Crohn^s disease [Not Recovered/Not Resolved]
  - Thrombosis [Not Recovered/Not Resolved]
  - Epistaxis [Not Recovered/Not Resolved]
  - Condition aggravated [Not Recovered/Not Resolved]
  - Anaemia [Not Recovered/Not Resolved]
  - Transfusion [Not Recovered/Not Resolved]
  - Pulmonary arterial hypertension [Unknown]
  - Presyncope [Recovering/Resolving]
  - Dizziness [Unknown]
  - Lung disorder [Unknown]
  - Erythema [Unknown]
  - Dyspnoea exertional [Unknown]
  - Dyspnoea [Unknown]
  - Oedema peripheral [Unknown]
  - Pulmonary arterial pressure increased [Unknown]
  - Nausea [Unknown]
  - Headache [Unknown]
  - Clumsiness [Unknown]
  - Lymphoedema [Unknown]
